FAERS Safety Report 8769346 (Version 1)
Quarter: 2012Q4

REPORT INFORMATION
  Report Type: 
  Country: US (occurrence: US)
  Receive Date: 20120904
  Receipt Date: 20120904
  Transmission Date: 20130627
  Serious: Yes (Other)
  Sender: FDA-Public Use
  Company Number: US-JNJFOC-20120812976

PATIENT
  Age: 52 Year
  Sex: Female
  Weight: 50.79 kg

DRUGS (6)
  1. NICOTROL [Suspect]
     Indication: SMOKING CESSATION THERAPY
     Route: 055
     Dates: start: 2011
  2. NICOTROL [Suspect]
     Indication: SMOKING CESSATION THERAPY
     Route: 055
     Dates: start: 2011
  3. NICOTROL [Suspect]
     Indication: SMOKING CESSATION THERAPY
     Route: 055
     Dates: start: 2011
  4. CALCIUM CARBONATE [Suspect]
     Indication: MINERAL SUPPLEMENTATION
     Route: 065
  5. SYNTHROID [Suspect]
     Indication: HYPOTHYROIDISM
     Route: 065
     Dates: start: 2012
  6. SYNTHROID [Suspect]
     Indication: HYPOTHYROIDISM
     Route: 065
     Dates: end: 2012

REACTIONS (10)
  - Hyperthyroidism [Recovering/Resolving]
  - Rib fracture [Unknown]
  - Feeling abnormal [Recovering/Resolving]
  - Psychomotor hyperactivity [Recovering/Resolving]
  - Pain [Unknown]
  - Neck injury [Unknown]
  - Back injury [Unknown]
  - Fall [Unknown]
  - Joint injury [Unknown]
  - Incorrect drug administration duration [Unknown]
